FAERS Safety Report 17968917 (Version 1)
Quarter: 2020Q3

REPORT INFORMATION
  Report Type: Spontaneous
  Country: US (occurrence: US)
  Receive Date: 20200701
  Receipt Date: 20200701
  Transmission Date: 20201103
  Serious: No
  Sender: FDA-Public Use
  Company Number: US-PFM-2019-06308

PATIENT
  Age: 10 Month
  Sex: Female
  Weight: 5 kg

DRUGS (3)
  1. HEMANGEOL [Suspect]
     Active Substance: PROPRANOLOL HYDROCHLORIDE
     Dosage: 2.2 ML, BID (2/DAY)
     Route: 048
  2. HEMANGEOL [Suspect]
     Active Substance: PROPRANOLOL HYDROCHLORIDE
     Indication: INFANTILE HAEMANGIOMA
     Dosage: 0.8 ML, BID (2/DAY)
     Route: 048
     Dates: start: 20190521
  3. HEMANGEOL [Suspect]
     Active Substance: PROPRANOLOL HYDROCHLORIDE
     Dosage: 1.7 ML, BID (2/DAY)
     Route: 048
     Dates: start: 20190521

REACTIONS (9)
  - Product use issue [Unknown]
  - Infantile haemangioma [Unknown]
  - Decreased appetite [Recovered/Resolved]
  - Condition aggravated [Unknown]
  - Hypersomnia [Unknown]
  - Off label use [Unknown]
  - Sleep disorder [Unknown]
  - Influenza [Unknown]
  - Peripheral coldness [Unknown]

NARRATIVE: CASE EVENT DATE: 20200114
